FAERS Safety Report 4957249-9 (Version None)
Quarter: 2006Q1

REPORT INFORMATION
  Report Type: 
  Country: None (occurrence: None)
  Receive Date: 20060323
  Receipt Date: 20060314
  Transmission Date: 20060701
  Serious: Yes (Other)
  Sender: FDA-Public Use
  Company Number: 2006036612

PATIENT
  Sex: Female

DRUGS (9)
  1. NEURONTIN [Suspect]
     Indication: NEURALGIA
     Dosage: 3600 MG
     Dates: end: 20060101
  2. LIPITOR [Suspect]
     Indication: BLOOD CHOLESTEROL INCREASED
  3. LYRICA [Suspect]
     Indication: NEURALGIA
     Dosage: 300 MG (150 MG, 2 IN 1 D)
     Dates: start: 20060101
  4. NORTRIPTYLINE (NORTRIPTYINE) [Concomitant]
  5. NEXIUM [Concomitant]
  6. ATENOLOL [Concomitant]
  7. FISH OIL (FISH OIL) [Concomitant]
  8. FLONASE [Concomitant]
  9. ASTELIN [Concomitant]

REACTIONS (8)
  - BLADDER PROLAPSE [None]
  - BLOOD CHOLESTEROL INCREASED [None]
  - CARDIAC MURMUR [None]
  - CORONARY ARTERY OCCLUSION [None]
  - DIABETES MELLITUS [None]
  - INADEQUATE ANALGESIA [None]
  - OEDEMA PERIPHERAL [None]
  - RHEUMATIC FEVER [None]
